FAERS Safety Report 7207068-8 (Version None)
Quarter: 2011Q1

REPORT INFORMATION
  Report Type: 
  Country: None (occurrence: None)
  Receive Date: 20110103
  Receipt Date: 20101222
  Transmission Date: 20110831
  Serious: Yes (Hospitalization)
  Sender: FDA-Public Use
  Company Number: B0691505A

PATIENT
  Age: 9 Year
  Sex: Male

DRUGS (2)
  1. PREDNISONE [Concomitant]
     Dates: start: 20100906, end: 20100906
  2. VENTOLIN [Suspect]
     Route: 055
     Dates: start: 20100906, end: 20100907

REACTIONS (2)
  - CHEST PAIN [None]
  - ELECTROCARDIOGRAM QT PROLONGED [None]
